FAERS Safety Report 9838259 (Version 4)
Quarter: 2014Q1

REPORT INFORMATION
  Report Type: Report from Study
  Country: CO (occurrence: CO)
  Receive Date: 20140123
  Receipt Date: 20140312
  Transmission Date: 20141002
  Serious: Yes (Other)
  Sender: FDA-Public Use
  Company Number: CO-AMGEN-COLCT2013091910

PATIENT
  Age: 52 Year
  Sex: Male
  Weight: 68.2 kg

DRUGS (5)
  1. ETANERCEPT [Suspect]
     Indication: RHEUMATOID ARTHRITIS
     Dosage: 50 MG, WEEKLY
     Route: 065
     Dates: start: 20130309, end: 20130424
  2. METHOTREXATE [Concomitant]
     Indication: RHEUMATOID ARTHRITIS
     Dosage: 2.5 MG, UNK
     Route: 048
     Dates: start: 2012
  3. PREDNISOLON                        /00016201/ [Concomitant]
     Indication: RHEUMATOID ARTHRITIS
     Dosage: 5 MG, UNK
     Route: 048
     Dates: start: 2012
  4. CALCIUM CARBONATE W/VITAMIN D NOS [Concomitant]
     Indication: RHEUMATOID ARTHRITIS
     Dosage: 600+200 MG, UNK
     Route: 048
     Dates: start: 2012
  5. CALCIUM CARBONATE W/VITAMIN D NOS [Concomitant]
     Dosage: 600+200 MG

REACTIONS (2)
  - Episcleritis [Recovered/Resolved]
  - Conjunctivitis [Unknown]
